FAERS Safety Report 21757600 (Version 3)
Quarter: 2023Q2

REPORT INFORMATION
  Report Type: Spontaneous
  Country: FI (occurrence: FI)
  Receive Date: 20221221
  Receipt Date: 20230613
  Transmission Date: 20230721
  Serious: Yes (Hospitalization, Disabling, Other)
  Sender: FDA-Public Use
  Company Number: FI-BIOGEN-2022BI01176864

PATIENT
  Age: 12 Year
  Sex: Male

DRUGS (4)
  1. SPINRAZA [Suspect]
     Active Substance: NUSINERSEN
     Indication: Spinal muscular atrophy
     Dosage: 28.3
     Route: 050
     Dates: start: 201805
  2. INSULIN NOS [Concomitant]
     Active Substance: INSULIN NOS
     Indication: Hyperglycaemia
     Route: 050
  3. POTASSIUM [Concomitant]
     Active Substance: POTASSIUM
     Indication: Hypokalaemia
     Route: 050
  4. ONDANSETRON [Concomitant]
     Active Substance: ONDANSETRON
     Indication: Product used for unknown indication
     Route: 050

REACTIONS (7)
  - Musculoskeletal disorder [Unknown]
  - Ketoacidosis [Recovered/Resolved]
  - Nausea [Recovered/Resolved]
  - Lactic acidosis [Recovered/Resolved]
  - Vomiting [Recovered/Resolved]
  - Post lumbar puncture syndrome [Unknown]
  - Spinal deformity [Unknown]

NARRATIVE: CASE EVENT DATE: 20230328
